FAERS Safety Report 22114354 (Version 1)
Quarter: 2023Q1

REPORT INFORMATION
  Report Type: Spontaneous
  Country: US (occurrence: None)
  Receive Date: 20230317
  Receipt Date: 20230317
  Transmission Date: 20230418
  Serious: No
  Sender: FDA-Public Use
  Company Number: None

PATIENT
  Sex: Female

DRUGS (1)
  1. ENBREL [Suspect]
     Active Substance: ETANERCEPT
     Indication: Joint ankylosis
     Dosage: FREQUENCY : WEEKLY;?
     Route: 058
     Dates: start: 20230301

REACTIONS (4)
  - Device defective [None]
  - Joint ankylosis [None]
  - Condition aggravated [None]
  - Product quality issue [None]
